FAERS Safety Report 18880916 (Version 1)
Quarter: 2021Q1

REPORT INFORMATION
  Report Type: Spontaneous
  Country: IT (occurrence: IT)
  Receive Date: 20210212
  Receipt Date: 20210212
  Transmission Date: 20210420
  Serious: Yes (Hospitalization, Other)
  Sender: FDA-Public Use
  Company Number: IT-AUROBINDO-AUR-APL-2021-005685

PATIENT
  Age: 35 Year
  Sex: Male

DRUGS (1)
  1. CITALOPRAM ORAL DROPS [Suspect]
     Active Substance: CITALOPRAM HYDROBROMIDE
     Indication: DEPRESSION
     Dosage: 15 MILLILITER, TOTAL
     Route: 048
     Dates: start: 20190915, end: 20190915

REACTIONS (3)
  - Drug abuse [Recovering/Resolving]
  - Hyperhidrosis [Recovering/Resolving]
  - Bradyphrenia [Recovering/Resolving]

NARRATIVE: CASE EVENT DATE: 20190915
